FAERS Safety Report 18493162 (Version 42)
Quarter: 2025Q2

REPORT INFORMATION
  Report Type: Report from Study
  Country: US (occurrence: US)
  Receive Date: 20201112
  Receipt Date: 20250618
  Transmission Date: 20250716
  Serious: Yes (Hospitalization, Other)
  Sender: TAKEDA
  Company Number: US-SHIRE-US202014788

PATIENT
  Age: 56 Year
  Sex: Female
  Weight: 84 kg

DRUGS (44)
  1. HUMAN IMMUNOGLOBULIN G [Suspect]
     Active Substance: HUMAN IMMUNOGLOBULIN G
     Indication: Primary immunodeficiency syndrome
     Dosage: UNK UNK, MONTHLY
  2. HUMAN IMMUNOGLOBULIN G [Suspect]
     Active Substance: HUMAN IMMUNOGLOBULIN G
     Indication: Immunodeficiency common variable
     Dosage: 32.5 MILLIGRAM, Q4WEEKS
  3. HUMAN IMMUNOGLOBULIN G [Suspect]
     Active Substance: HUMAN IMMUNOGLOBULIN G
     Indication: Immune system disorder
     Dosage: 40 GRAM, Q4WEEKS
  4. HUMAN IMMUNOGLOBULIN G [Suspect]
     Active Substance: HUMAN IMMUNOGLOBULIN G
     Dosage: 40 GRAM, Q4WEEKS
  5. HUMAN IMMUNOGLOBULIN G [Suspect]
     Active Substance: HUMAN IMMUNOGLOBULIN G
     Dosage: 400 MILLIGRAM/KILOGRAM, Q4WEEKS
  6. HUMAN IMMUNOGLOBULIN G [Suspect]
     Active Substance: HUMAN IMMUNOGLOBULIN G
     Dosage: UNK UNK, Q4WEEKS
     Dates: start: 20200316
  7. HUMAN IMMUNOGLOBULIN G [Suspect]
     Active Substance: HUMAN IMMUNOGLOBULIN G
     Dosage: 32.5 GRAM, Q4WEEKS
     Dates: start: 20200317
  8. HUMAN IMMUNOGLOBULIN G [Suspect]
     Active Substance: HUMAN IMMUNOGLOBULIN G
     Dosage: UNK UNK, MONTHLY
     Dates: start: 20200413
  9. HUMAN IMMUNOGLOBULIN G [Suspect]
     Active Substance: HUMAN IMMUNOGLOBULIN G
     Dosage: 32.5 GRAM, Q4WEEKS
     Dates: start: 20221228
  10. HUMAN IMMUNOGLOBULIN G [Suspect]
     Active Substance: HUMAN IMMUNOGLOBULIN G
     Dosage: 32.5 MILLIGRAM, Q4WEEKS
  11. HUMAN IMMUNOGLOBULIN G [Suspect]
     Active Substance: HUMAN IMMUNOGLOBULIN G
     Dosage: 32.5 GRAM, Q4WEEKS
  12. HUMAN IMMUNOGLOBULIN G [Suspect]
     Active Substance: HUMAN IMMUNOGLOBULIN G
  13. HUMAN IMMUNOGLOBULIN G [Suspect]
     Active Substance: HUMAN IMMUNOGLOBULIN G
     Dosage: 32.5 GRAM, Q4WEEKS
  14. HEPARIN [Concomitant]
     Active Substance: HEPARIN SODIUM
  15. DIPHENHYDRAMINE HYDROCHLORIDE [Concomitant]
     Active Substance: DIPHENHYDRAMINE HYDROCHLORIDE
  16. DEXAMETHASONE\TOBRAMYCIN [Concomitant]
     Active Substance: DEXAMETHASONE\TOBRAMYCIN
  17. EPINEPHRINE [Concomitant]
     Active Substance: EPINEPHRINE
  18. SODIUM CHLORIDE [Concomitant]
     Active Substance: SODIUM CHLORIDE
  19. CALCIUM\CHOLECALCIFEROL [Concomitant]
     Active Substance: CALCIUM\CHOLECALCIFEROL
  20. ACETAMINOPHEN [Concomitant]
     Active Substance: ACETAMINOPHEN
  21. RESTASIS [Concomitant]
     Active Substance: CYCLOSPORINE
  22. SYNTHROID [Concomitant]
     Active Substance: LEVOTHYROXINE SODIUM
  23. FLUCONAZOLE [Concomitant]
     Active Substance: FLUCONAZOLE
  24. LIDOCAINE [Concomitant]
     Active Substance: LIDOCAINE
  25. DOXYCYCLINE HYCLATE [Concomitant]
     Active Substance: DOXYCYCLINE HYCLATE
     Indication: Skin infection
  26. GABAPENTIN [Concomitant]
     Active Substance: GABAPENTIN
  27. ACETAMINOPHEN\HYDROCODONE [Concomitant]
     Active Substance: ACETAMINOPHEN\HYDROCODONE
  28. CYCLOBENZAPRINE HYDROCHLORIDE [Concomitant]
     Active Substance: CYCLOBENZAPRINE HYDROCHLORIDE
  29. TYLENOL [Concomitant]
     Active Substance: ACETAMINOPHEN
     Indication: Headache
  30. VANCOMYCIN [Concomitant]
     Active Substance: VANCOMYCIN
     Indication: Device related infection
     Dosage: UNK UNK, QD
  31. THIAMINE HYDROCHLORIDE [Concomitant]
     Active Substance: THIAMINE HYDROCHLORIDE
  32. METHOCARBAMOL [Concomitant]
     Active Substance: METHOCARBAMOL
  33. LEVOTHYROXINE [Concomitant]
     Active Substance: LEVOTHYROXINE
  34. DOXYCYCLINE [Concomitant]
     Active Substance: DOXYCYCLINE
  35. DIPHENHYDRAMINE [Concomitant]
     Active Substance: DIPHENHYDRAMINE
  36. Collagen hydrolysate [Concomitant]
  37. DESONIDE [Concomitant]
     Active Substance: DESONIDE
  38. HALCINONIDE [Concomitant]
     Active Substance: HALCINONIDE
  39. PENICILLIN V POTASSIUM [Concomitant]
     Active Substance: PENICILLIN V POTASSIUM
  40. MYRBETRIQ [Concomitant]
     Active Substance: MIRABEGRON
  41. SULFAMETHOXAZOLE AND TRIMETHOPRIM [Concomitant]
     Active Substance: SULFAMETHOXAZOLE\TRIMETHOPRIM
  42. AZELASTINE HYDROCHLORIDE\FLUTICASONE PROPIONATE [Concomitant]
     Active Substance: AZELASTINE HYDROCHLORIDE\FLUTICASONE PROPIONATE
  43. AMOXICILLIN [Concomitant]
     Active Substance: AMOXICILLIN
  44. BACTRIM [Concomitant]
     Active Substance: SULFAMETHOXAZOLE\TRIMETHOPRIM
     Indication: Product used for unknown indication

REACTIONS (38)
  - Device related infection [Unknown]
  - Vascular device infection [Unknown]
  - Lactobacillus infection [Unknown]
  - Pneumonia [Unknown]
  - Dermatitis contact [Unknown]
  - Headache [Recovered/Resolved]
  - Skin infection [Recovered/Resolved]
  - Infusion site vesicles [Unknown]
  - Implant site infection [Unknown]
  - Catheter site swelling [Unknown]
  - COVID-19 [Recovered/Resolved]
  - Urinary tract infection [Unknown]
  - Infusion related reaction [Recovered/Resolved]
  - Tooth infection [Unknown]
  - Peripheral swelling [Unknown]
  - Respiratory tract infection [Unknown]
  - Device issue [Unknown]
  - Pituitary cyst [Unknown]
  - Hypertonic bladder [Unknown]
  - Product dose omission issue [Unknown]
  - Candida infection [Unknown]
  - Infection [Unknown]
  - Inappropriate schedule of product administration [Unknown]
  - Sinusitis [Unknown]
  - Upper respiratory tract infection [Unknown]
  - Feeling abnormal [Unknown]
  - Infusion site reaction [Unknown]
  - Pain [Unknown]
  - Dermatitis [Unknown]
  - Malaise [Not Recovered/Not Resolved]
  - Oedema [Unknown]
  - Pain in extremity [Unknown]
  - Chills [Recovered/Resolved]
  - Nausea [Unknown]
  - Pruritus [Unknown]
  - Pyrexia [Recovered/Resolved]
  - Fatigue [Unknown]
  - Ear infection [Unknown]

NARRATIVE: CASE EVENT DATE: 20211230
